FAERS Safety Report 15138002 (Version 2)
Quarter: 2018Q3

REPORT INFORMATION
  Report Type: Spontaneous
  Country: FR (occurrence: FR)
  Receive Date: 20180712
  Receipt Date: 20180903
  Transmission Date: 20181010
  Serious: Yes (Hospitalization, Other)
  Sender: FDA-Public Use
  Company Number: FR-AUROBINDO-AUR-APL-2018-035196

PATIENT
  Age: 43 Year
  Sex: Male

DRUGS (4)
  1. VALACYCLOVIR [Suspect]
     Active Substance: VALACYCLOVIR HYDROCHLORIDE
     Indication: OPHTHALMIC HERPES SIMPLEX
     Dosage: 500 MG, UNK (TWO TABLETS THREE TIMES A DAY)
     Route: 048
  2. ACICLOVIR [Suspect]
     Active Substance: ACYCLOVIR
     Indication: OPHTHALMIC HERPES SIMPLEX
     Dosage: UNK
     Route: 048
  3. GANCICLOVIR. [Suspect]
     Active Substance: GANCICLOVIR
     Indication: OPHTHALMIC HERPES SIMPLEX
     Dosage: UNK
     Route: 047
  4. TRIFLURIDINE. [Suspect]
     Active Substance: TRIFLURIDINE
     Indication: OPHTHALMIC HERPES SIMPLEX
     Dosage: UNK
     Route: 047

REACTIONS (5)
  - Drug ineffective [Unknown]
  - Drug resistance [Unknown]
  - Condition aggravated [Recovered/Resolved]
  - Ophthalmic herpes simplex [Recovered/Resolved]
  - Therapy non-responder [Unknown]
